FAERS Safety Report 5487222-6 (Version None)
Quarter: 2007Q3

REPORT INFORMATION
  Report Type: 
  Country: None (occurrence: None)
  Receive Date: 20070925
  Receipt Date: 20070806
  Transmission Date: 20080115
  Serious: No
  Sender: FDA-Public Use
  Company Number: 2007US001376

PATIENT
  Age: 87 Year
  Sex: Female

DRUGS (3)
  1. VESICARE [Suspect]
     Indication: BLADDER DISORDER
     Dosage: 10 MG, UID/QD, ORAL
     Route: 048
     Dates: start: 20070501
  2. NORVASC [Concomitant]
  3. WARFARIN SODIUM [Concomitant]

REACTIONS (1)
  - DRUG INEFFECTIVE [None]
